FAERS Safety Report 17812784 (Version 1)
Quarter: 2020Q2

REPORT INFORMATION
  Report Type: Report from Study
  Country: CA (occurrence: CA)
  Receive Date: 20200521
  Receipt Date: 20200521
  Transmission Date: 20200714
  Serious: Yes (Hospitalization)
  Sender: FDA-Public Use
  Company Number: CA-TAKEDA-2020TUS021244

PATIENT
  Age: 52 Year
  Sex: Female

DRUGS (3)
  1. OMEGA 3 6 9                        /01334101/ [Concomitant]
     Active Substance: FISH OIL
     Dosage: UNK
  2. VEDOLIZUMAB [Suspect]
     Active Substance: VEDOLIZUMAB
     Dosage: 300 MILLIGRAM
     Route: 042
  3. VEDOLIZUMAB [Suspect]
     Active Substance: VEDOLIZUMAB
     Indication: COLITIS ULCERATIVE
     Dosage: 300 MILLIGRAM
     Route: 042
     Dates: start: 20191101

REACTIONS (3)
  - Fatigue [Not Recovered/Not Resolved]
  - Cytomegalovirus infection [Recovering/Resolving]
  - Hyperthermia [Unknown]
